FAERS Safety Report 5247347-7 (Version None)
Quarter: 2007Q1

REPORT INFORMATION
  Report Type: 
  Country: None (occurrence: None)
  Receive Date: 20070227
  Receipt Date: 20070223
  Transmission Date: 20070707
  Serious: Yes (Other)
  Sender: FDA-Public Use
  Company Number: CA-JNJFOC-20070204730

PATIENT
  Age: 80 Year

DRUGS (1)
  1. REMICADE [Suspect]
     Indication: DRUG USE FOR UNKNOWN INDICATION
     Route: 042

REACTIONS (3)
  - BACTERIAL INFECTION [None]
  - LOWER RESPIRATORY TRACT INFECTION [None]
  - TUBERCULOSIS [None]
